FAERS Safety Report 4530334-1 (Version None)
Quarter: 2004Q4

REPORT INFORMATION
  Report Type: 
  Country: None (occurrence: None)
  Receive Date: 20041215
  Receipt Date: 20041203
  Transmission Date: 20050328
  Serious: Yes (Hospitalization)
  Sender: FDA-Public Use
  Company Number: 2004104921

PATIENT
  Age: 35 Year
  Sex: Male

DRUGS (6)
  1. AZITHROMYCIN [Suspect]
     Indication: NASOPHARYNGITIS
     Dosage: 500 MG (1 IN 1 D), ORAL
     Route: 048
     Dates: start: 20041125
  2. CEFCAPENE PIVOXIL HYDROCHLORIDE (CEFCAPENE PIVOXIL HYDROCHLORIDE) [Suspect]
     Indication: NASOPHARYNGITIS
     Dosage: ORAL
     Route: 048
     Dates: start: 20041122
  3. IBUPROFEN [Suspect]
     Indication: NASOPHARYNGITIS
     Dosage: ORAL
     Route: 048
     Dates: start: 20041122
  4. TIARAMIDE HYDROCHLORIDE (TIARAMIDE HYDROCHLORIDE) [Concomitant]
  5. PREDNISOLONE [Concomitant]
  6. AZELASTINE (AZELASTINE) [Concomitant]

REACTIONS (2)
  - EXANTHEM [None]
  - PYREXIA [None]
